FAERS Safety Report 4552862-5 (Version None)
Quarter: 2005Q1

REPORT INFORMATION
  Report Type: 
  Country: None (occurrence: None)
  Receive Date: 20050114
  Receipt Date: 20050105
  Transmission Date: 20050727
  Serious: Yes (Death, Hospitalization)
  Sender: FDA-Public Use
  Company Number: HU-ROCHE-391409

PATIENT
  Age: 62 Year
  Sex: Female

DRUGS (1)
  1. CELLCEPT [Suspect]
     Dosage: MMF HAD BEEN REDUCED AND TEMPORARILY DISCONTINUED DUE TO DIARRHOEA AND ANAEMIA SEVERAL TIMES THROUG+
     Route: 048
     Dates: start: 20010615, end: 20040930

REACTIONS (17)
  - ANAEMIA [None]
  - BLOOD CULTURE POSITIVE [None]
  - BONE MARROW DEPRESSION [None]
  - CALCINOSIS [None]
  - CARDIAC DISORDER [None]
  - CARDIAC FAILURE [None]
  - COLITIS ULCERATIVE [None]
  - CROHN'S DISEASE [None]
  - ENDOCARDITIS [None]
  - FIBROSIS [None]
  - GASTROINTESTINAL HAEMORRHAGE [None]
  - ILEITIS [None]
  - PERITONITIS [None]
  - RENAL TUBULAR NECROSIS [None]
  - SUTURE RELATED COMPLICATION [None]
  - THROMBOCYTOPENIA [None]
  - ULCER [None]
